FAERS Safety Report 5380310-4 (Version None)
Quarter: 2007Q3

REPORT INFORMATION
  Report Type: 
  Country: None (occurrence: None)
  Receive Date: 20070706
  Receipt Date: 20070516
  Transmission Date: 20080115
  Serious: No
  Sender: FDA-Public Use
  Company Number: A0651590A

PATIENT
  Age: 44 Year
  Sex: Female

DRUGS (7)
  1. TYKERB [Suspect]
     Indication: BREAST CANCER
     Dosage: 5TAB PER DAY
     Route: 048
     Dates: start: 20070511
  2. ABRAXANE [Concomitant]
  3. ZOMETA [Concomitant]
  4. NASONEX [Concomitant]
  5. SINGULAIR [Concomitant]
  6. DECADRON [Concomitant]
  7. KEPPRA [Concomitant]

REACTIONS (2)
  - DIARRHOEA [None]
  - ORAL PAIN [None]
